FAERS Safety Report 6532546-4 (Version None)
Quarter: 2009Q4

REPORT INFORMATION
  Report Type: 
  Country: None (occurrence: None)
  Receive Date: 20091215
  Receipt Date: 20091208
  Transmission Date: 20100525
  Serious: Yes (Hospitalization, Other)
  Sender: FDA-Public Use
  Company Number: AEUSA200900328

PATIENT
  Age: 27 Year
  Sex: Male

DRUGS (1)
  1. GAMUNEX [Suspect]
     Indication: ACQUIRED IMMUNODEFICIENCY SYNDROME
     Dosage: IV
     Route: 042

REACTIONS (1)
  - LOBAR PNEUMONIA [None]
